FAERS Safety Report 8066574-7 (Version None)
Quarter: 2012Q1

REPORT INFORMATION
  Report Type: 
  Country: None (occurrence: None)
  Receive Date: 20120124
  Receipt Date: 20120118
  Transmission Date: 20120608
  Serious: Yes (Death, Hospitalization)
  Sender: FDA-Public Use
  Company Number: PHEH2011US012565

PATIENT
  Sex: Female
  Weight: 53 kg

DRUGS (10)
  1. ZITHROMAX [Concomitant]
  2. BACTRIM [Concomitant]
  3. MEROPENEM [Concomitant]
  4. TOBI [Suspect]
     Indication: CYSTIC FIBROSIS
     Dosage: 300 MG, BID ALTERNATE MONTH
     Dates: start: 20111202
  5. DIURETICS [Concomitant]
  6. AMPHOTERICIN B [Concomitant]
  7. NOVOLOG [Concomitant]
  8. IMMUNOSUPPRESSANTS [Concomitant]
  9. CALCIUM [Concomitant]
  10. VANCOMYCIN HCL [Concomitant]

REACTIONS (7)
  - PNEUMONIA [None]
  - DEHYDRATION [None]
  - MENTAL DISORDER [None]
  - PYREXIA [None]
  - INFECTION [None]
  - RESPIRATORY FAILURE [None]
  - RENAL FAILURE [None]
